FAERS Safety Report 20083353 (Version 5)
Quarter: 2022Q1

REPORT INFORMATION
  Report Type: Spontaneous
  Country: GB (occurrence: GB)
  Receive Date: 20211117
  Receipt Date: 20220218
  Transmission Date: 20220423
  Serious: Yes (Hospitalization, Disabling, Other)
  Sender: FDA-Public Use
  Company Number: GB-ORGANON-O2111GBR000040

PATIENT
  Age: 78 Year
  Sex: Female
  Weight: 61.6 kg

DRUGS (22)
  1. ALENDRONIC ACID [Suspect]
     Active Substance: ALENDRONIC ACID
     Indication: Coeliac disease
     Dosage: 70 MILLIGRAM
     Route: 048
     Dates: start: 20200331, end: 20211004
  2. ALENDRONIC ACID [Suspect]
     Active Substance: ALENDRONIC ACID
     Indication: Osteoporosis
  3. ATORVASTATIN [Suspect]
     Active Substance: ATORVASTATIN
     Indication: Product used for unknown indication
     Dosage: 1 DOSAGE FORM, ONCE A DAY
     Route: 048
     Dates: start: 20211118, end: 20211202
  4. CLOPIDOGREL [Suspect]
     Active Substance: CLOPIDOGREL BISULFATE
     Indication: Product used for unknown indication
     Dosage: 1 DOSAGE FORM, ONCE A DAY(TAKE ONE DAILY, 56 TABLET)
     Route: 048
     Dates: start: 20211118, end: 20211202
  5. MIRTAZAPINE [Suspect]
     Active Substance: MIRTAZAPINE
     Indication: Product used for unknown indication
     Dosage: 1 DOSAGE FORM, ONCE A DAY(1 DOSAGE FORM, EVERY NIGHT (1 NOCTE)
     Route: 048
     Dates: start: 20201129
  6. ACETAMINOPHEN [Suspect]
     Active Substance: ACETAMINOPHEN
     Indication: Osteoarthritis
     Dosage: UNK, FOUR TIMES/DAY(PARACETAMOL)
     Route: 065
     Dates: start: 20210927, end: 20211122
  7. ACETAMINOPHEN [Suspect]
     Active Substance: ACETAMINOPHEN
     Indication: Pain
  8. ACETAMINOPHEN [Suspect]
     Active Substance: ACETAMINOPHEN
     Indication: Pyrexia
  9. IBUPROFEN [Suspect]
     Active Substance: IBUPROFEN
     Indication: Arthralgia
     Dosage: 100 GRAM, TID (3 TIMES PER DAY)
     Route: 065
     Dates: start: 20200721, end: 20210913
  10. IBUPROFEN [Suspect]
     Active Substance: IBUPROFEN
     Indication: Arthralgia
  11. RAMIPRIL [Suspect]
     Active Substance: RAMIPRIL
     Indication: Hypertension
     Dosage: TAKE ONE DAILY. THE DOSE OF THIS MEDICATION MAY NEED TO BE ALTERED IF YOU HAVE A DIARRHOEA/VOMITING
     Route: 048
     Dates: start: 20211122, end: 20211122
  12. CARBAZOCHROME [Suspect]
     Active Substance: CARBAZOCHROME
     Indication: Product used for unknown indication
     Dosage: 1 TO BE TAKEN TWICE DAILY, 112 TABLET
     Route: 048
     Dates: start: 20211122, end: 20211122
  13. ASPIRIN [Suspect]
     Active Substance: ASPIRIN
     Indication: Product used for unknown indication
     Dosage: TAKE ONE DAILY, 56 TABLETS
     Route: 048
     Dates: start: 20211118, end: 20211202
  14. LANSOPRAZOLE [Suspect]
     Active Substance: LANSOPRAZOLE
     Indication: Product used for unknown indication
     Dosage: TAKE ONE ONCE DAILY WHILST TAKING CITALOPRAM, 28 GASTRO-RESISTANT CAPSULES
     Route: 048
     Dates: start: 20211122, end: 20211122
  15. CALCIUM CARBONATE\CHOLECALCIFEROL [Concomitant]
     Active Substance: CALCIUM CARBONATE\CHOLECALCIFEROL
     Indication: Blood calcium
     Dosage: UNK
     Route: 048
  16. CETIRIZINE [Concomitant]
     Active Substance: CETIRIZINE HYDROCHLORIDE
     Indication: Seasonal allergy
     Dosage: UNK
     Route: 048
  17. CETIRIZINE [Concomitant]
     Active Substance: CETIRIZINE HYDROCHLORIDE
     Indication: Seasonal allergy
     Dosage: 1 DOSAGE FORM, QD (TAKE ONE DAILY)
     Route: 048
     Dates: start: 20180226, end: 20210913
  18. CITALOPRAM [Concomitant]
     Active Substance: CITALOPRAM HYDROBROMIDE
     Indication: Mood altered
     Dosage: UNK
     Route: 048
  19. CITALOPRAM [Concomitant]
     Active Substance: CITALOPRAM HYDROBROMIDE
     Dosage: UNK
     Route: 048
  20. LANTUS [Concomitant]
     Active Substance: INSULIN GLARGINE
     Indication: Type 2 diabetes mellitus
     Dosage: 100 INTERNATIONAL UNIT PER MILLILITRE,SOLUTION FOR INJECTION 3 ML PRE-FILLED SOLOSTAR PENS(SANOFI),
     Route: 048
     Dates: start: 20180226, end: 20210802
  21. SIMVASTATIN [Concomitant]
     Active Substance: SIMVASTATIN
     Indication: Blood cholesterol
     Dosage: UNK
     Route: 048
  22. SIMVASTATIN [Concomitant]
     Active Substance: SIMVASTATIN
     Route: 048

REACTIONS (22)
  - Mobility decreased [Not Recovered/Not Resolved]
  - General physical health deterioration [Not Recovered/Not Resolved]
  - Labyrinthitis [Not Recovered/Not Resolved]
  - Noninfective gingivitis [Unknown]
  - Tooth loss [Not Recovered/Not Resolved]
  - Post viral fatigue syndrome [Unknown]
  - Arthritis [Not Recovered/Not Resolved]
  - Blood calcium decreased [Not Recovered/Not Resolved]
  - Constipation [Not Recovered/Not Resolved]
  - Asthenia [Unknown]
  - Malaise [Not Recovered/Not Resolved]
  - Nausea [Unknown]
  - Tooth fracture [Not Recovered/Not Resolved]
  - Fall [Unknown]
  - Balance disorder [Unknown]
  - Arthralgia [Unknown]
  - Coordination abnormal [Unknown]
  - Fatigue [Unknown]
  - Muscle twitching [Unknown]
  - Angiopathy [Unknown]
  - Product use in unapproved indication [Unknown]
  - Off label use [Unknown]

NARRATIVE: CASE EVENT DATE: 20210101
